FAERS Safety Report 7617632-X (Version None)
Quarter: 2011Q3

REPORT INFORMATION
  Report Type: 
  Country: None (occurrence: None)
  Receive Date: 20110718
  Receipt Date: 20110706
  Transmission Date: 20111222
  Serious: Yes (Other)
  Sender: FDA-Public Use
  Company Number: US-JNJFOC-20110702541

PATIENT
  Sex: Female

DRUGS (4)
  1. BENADRYL [Concomitant]
     Indication: PREMEDICATION
  2. STEROIDS NOS [Concomitant]
  3. REMICADE [Suspect]
     Route: 042
     Dates: start: 20110101
  4. REMICADE [Suspect]
     Indication: RHEUMATOID ARTHRITIS
     Route: 042
     Dates: start: 20110628

REACTIONS (5)
  - ARTHRALGIA [None]
  - HYPOKINESIA [None]
  - PAIN IN EXTREMITY [None]
  - INFUSION RELATED REACTION [None]
  - PAIN [None]
